FAERS Safety Report 5104045-8 (Version None)
Quarter: 2006Q3

REPORT INFORMATION
  Report Type: 
  Country: None (occurrence: None)
  Receive Date: 20060911
  Receipt Date: 20060831
  Transmission Date: 20061208
  Serious: Yes (Other)
  Sender: FDA-Public Use
  Company Number: 2006099494

PATIENT
  Age: 76 Year
  Sex: Male
  Weight: 55 kg

DRUGS (4)
  1. SALAZOPYRIN (SULFASALAZINE) [Suspect]
     Indication: COLITIS ULCERATIVE
     Dosage: 4000 MG (3 IN 1 D), ORAL
     Route: 048
     Dates: start: 20060529
  2. PREDNISOLONE [Suspect]
     Indication: COLITIS ULCERATIVE
     Dosage: 10 MG DAILY, INTRAVENOUS
     Route: 042
     Dates: start: 20060529
  3. MERCAPTOPURINE [Suspect]
     Indication: COLITIS ULCERATIVE
     Dosage: 20 MG DAILY, ORAL
     Route: 048
     Dates: start: 20060707
  4. ELENTAL (MINERAL NOS, VITAMINS NOS) [Suspect]
     Indication: COLITIS ULCERATIVE
     Dosage: TWICE DAILY, ORAL
     Route: 048
     Dates: start: 20060731

REACTIONS (1)
  - ERYTHEMA [None]
